FAERS Safety Report 9203354 (Version 1)
Quarter: 2013Q1

REPORT INFORMATION
  Report Type: Spontaneous
  Country: FR (occurrence: None)
  Receive Date: 20130328
  Receipt Date: 20130328
  Transmission Date: 20140127
  Serious: Yes (Hospitalization, Disabling)
  Sender: FDA-Public Use
  Company Number: 2013-000854

PATIENT
  Age: 19 Year
  Sex: Female

DRUGS (6)
  1. CACIT D3 [Suspect]
     Dosage: 1 DOSE FORM (1000 MG/880 UI) DAILY, ORAL
     Route: 048
  2. ACTONEL (RISEDRONATE SODIUM) TABLET, 35MG [Suspect]
     Route: 048
  3. KARDEGIC [Suspect]
     Dosage: 150 MG DAILY (TWO 75 MG SACHETS DAILY, ORAL
     Route: 048
     Dates: start: 201006, end: 20110421
  4. IMUREL [Suspect]
     Route: 048
     Dates: start: 2007
  5. INEXIUM [Suspect]
     Route: 048
  6. SOLUPRED [Suspect]
     Route: 048

REACTIONS (4)
  - Periorbital haematoma [None]
  - Conjunctival oedema [None]
  - Ocular hypertension [None]
  - Retinal artery occlusion [None]
